FAERS Safety Report 5143932-1 (Version None)
Quarter: 2006Q4

REPORT INFORMATION
  Report Type: 
  Country: None (occurrence: None)
  Receive Date: 20061106
  Receipt Date: 20061025
  Transmission Date: 20070319
  Serious: Yes (Hospitalization)
  Sender: FDA-Public Use
  Company Number: PHFR2006GB03195

PATIENT
  Age: 28 Year
  Sex: Male

DRUGS (1)
  1. VOLTAREN [Suspect]
     Indication: RENAL COLIC
     Dosage: 75MG DAILY
     Route: 030
     Dates: start: 20060831, end: 20060831

REACTIONS (13)
  - BLOOD PRESSURE INCREASED [None]
  - CAROTID PULSE DECREASED [None]
  - CYANOSIS [None]
  - HEART RATE INCREASED [None]
  - LOSS OF CONSCIOUSNESS [None]
  - NAUSEA [None]
  - RADIAL PULSE DECREASED [None]
  - RESPIRATORY ARREST [None]
  - RESPIRATORY DEPRESSION [None]
  - SOMNOLENCE [None]
  - TACHYCARDIA [None]
  - VENTRICULAR FIBRILLATION [None]
  - VENTRICULAR TACHYCARDIA [None]
